FAERS Safety Report 23772546 (Version 1)
Quarter: 2024Q2

REPORT INFORMATION
  Report Type: Report from Study
  Country: CN (occurrence: CN)
  Receive Date: 20240423
  Receipt Date: 20240423
  Transmission Date: 20240716
  Serious: Yes (Other)
  Sender: FDA-Public Use
  Company Number: CN-Accord-420036

PATIENT

DRUGS (3)
  1. AZACITIDINE [Suspect]
     Active Substance: AZACITIDINE
     Indication: Acute myeloid leukaemia
     Dosage: ON DAYS 1-5
     Route: 058
  2. VENETOCLAX [Suspect]
     Active Substance: VENETOCLAX
     Indication: Acute myeloid leukaemia
     Dosage: ON DAY 3
     Route: 048
  3. VENETOCLAX [Suspect]
     Active Substance: VENETOCLAX
     Indication: Acute myeloid leukaemia
     Dosage: ON DAYS 4-30
     Route: 048

REACTIONS (6)
  - Tumour lysis syndrome [Unknown]
  - White blood cell count decreased [Unknown]
  - Thrombocytopenia [Unknown]
  - Anaemia [Unknown]
  - Neutropenia [Unknown]
  - Pneumonia fungal [Unknown]
